FAERS Safety Report 9307815 (Version 2)
Quarter: 2013Q3

REPORT INFORMATION
  Report Type: Report from Study
  Country: BR (occurrence: BR)
  Receive Date: 20130524
  Receipt Date: 20130718
  Transmission Date: 20140515
  Serious: Yes (Hospitalization)
  Sender: FDA-Public Use
  Company Number: BR-ABBOTT-13P-020-1092925-00

PATIENT
  Age: 47 Year
  Sex: Female
  Weight: 57 kg

DRUGS (6)
  1. HUMIRA [Suspect]
     Indication: CROHN^S DISEASE
     Dosage: WEEK 0
     Route: 058
     Dates: start: 201209
  2. HUMIRA [Suspect]
     Route: 058
  3. HUMIRA [Suspect]
     Route: 058
  4. MESALAZINE [Concomitant]
     Indication: CROHN^S DISEASE
     Route: 054
  5. MESALAZINE [Concomitant]
     Route: 048
  6. PREDNISONE [Concomitant]
     Indication: PRODUCT USED FOR UNKNOWN INDICATION

REACTIONS (12)
  - Haematochezia [Not Recovered/Not Resolved]
  - Thrombosis [Not Recovered/Not Resolved]
  - Platelet count decreased [Unknown]
  - Immunodeficiency [Unknown]
  - Drug ineffective [Not Recovered/Not Resolved]
  - Abdominal pain [Unknown]
  - Weight decreased [Unknown]
  - Influenza [Unknown]
  - Colitis [Recovering/Resolving]
  - Muscle spasms [Unknown]
  - Intestinal haemorrhage [Unknown]
  - Weight increased [Unknown]
